FAERS Safety Report 23681634 (Version 2)
Quarter: 2024Q2

REPORT INFORMATION
  Report Type: Report from Study
  Country: US (occurrence: US)
  Receive Date: 20240328
  Receipt Date: 20240617
  Transmission Date: 20240715
  Serious: Yes (Hospitalization, Other)
  Sender: FDA-Public Use
  Company Number: US-AUROBINDO-AUR-APL-2024-013117

PATIENT
  Age: 67 Year
  Sex: Female
  Weight: 170.2 kg

DRUGS (2)
  1. TAZEMETOSTAT [Suspect]
     Active Substance: TAZEMETOSTAT
     Indication: Product used for unknown indication
     Dosage: UNK (18850 MG+72000 MILLIGRAM)
     Route: 065
     Dates: start: 20240305, end: 20240307
  2. BELINOSTAT [Suspect]
     Active Substance: BELINOSTAT

REACTIONS (7)
  - Pain in extremity [Unknown]
  - Hypertension [Unknown]
  - Nausea [Unknown]
  - Fatigue [Unknown]
  - Decreased appetite [Unknown]
  - Oedema peripheral [Unknown]
  - Constipation [Unknown]

NARRATIVE: CASE EVENT DATE: 20240124
